FAERS Safety Report 6733635-1 (Version None)
Quarter: 2010Q2

REPORT INFORMATION
  Report Type: 
  Country: None (occurrence: None)
  Receive Date: 20100520
  Receipt Date: 20100510
  Transmission Date: 20101027
  Serious: Yes (Hospitalization)
  Sender: FDA-Public Use
  Company Number: JP-PFIZER INC-2010053421

PATIENT
  Age: 66 Year
  Sex: Male
  Weight: 64 kg

DRUGS (2)
  1. SUNITINIB MALATE [Suspect]
     Indication: RENAL CELL CARCINOMA
     Dosage: 50 MG, 1X/DAY
     Route: 048
     Dates: start: 20090303, end: 20090314
  2. MICARDIS [Concomitant]
     Dosage: UNK
     Route: 048
     Dates: end: 20090314

REACTIONS (1)
  - GUILLAIN-BARRE SYNDROME [None]
